FAERS Safety Report 23427789 (Version 1)
Quarter: 2024Q1

REPORT INFORMATION
  Report Type: Spontaneous
  Country: US (occurrence: US)
  Receive Date: 20240122
  Receipt Date: 20240122
  Transmission Date: 20240410
  Serious: No
  Sender: FDA-Public Use
  Company Number: US-Nobelpharma America, LLC-NPA-2024-00035

PATIENT
  Sex: Male

DRUGS (2)
  1. HYFTOR [Suspect]
     Active Substance: SIROLIMUS
     Indication: Tuberous sclerosis complex
     Dosage: APPLY 1 APPLICATION EXTERNALLY TO FACE EVERY MORNING FOR FACIAL ANGIOFIBROMAS
     Dates: start: 20220930
  2. UNSPECIFIED INGREDIENT [Concomitant]
     Active Substance: UNSPECIFIED INGREDIENT

REACTIONS (2)
  - Dry skin [Unknown]
  - Intentional product misuse [None]
